FAERS Safety Report 8017695-6 (Version None)
Quarter: 2012Q1

REPORT INFORMATION
  Report Type: 
  Country: None (occurrence: None)
  Receive Date: 20120103
  Receipt Date: 20111221
  Transmission Date: 20120608
  Serious: Yes (Other)
  Sender: FDA-Public Use
  Company Number: CA-JNJFOC-20111212219

PATIENT
  Sex: Female
  Weight: 96.9 kg

DRUGS (7)
  1. REMICADE [Suspect]
     Indication: PRODUCT USED FOR UNKNOWN INDICATION
     Route: 042
  2. METFORMIN HCL [Concomitant]
  3. PROZAC [Concomitant]
  4. WELLBUTRIN [Concomitant]
  5. ATACAND [Concomitant]
  6. ASPIRIN [Concomitant]
  7. CRESTOR [Concomitant]

REACTIONS (3)
  - HYSTERECTOMY [None]
  - CYSTITIS [None]
  - INCISION SITE ERYTHEMA [None]
